FAERS Safety Report 8021596-7 (Version None)
Quarter: 2011Q4

REPORT INFORMATION
  Report Type: 
  Country: None (occurrence: None)
  Receive Date: 20111230
  Receipt Date: 20111221
  Transmission Date: 20120403
  Serious: Yes (Life-Threatening)
  Sender: FDA-Public Use
  Company Number: 1127800

PATIENT
  Age: 78 Year
  Sex: Female
  Weight: 65 kg

DRUGS (7)
  1. NAFAMOSTAT MESILATE [Concomitant]
  2. DOPAMINE HYDROCHLORIDE [Concomitant]
  3. DEXAMEDETOMIDINE HYDROCHLORIDE [Suspect]
     Indication: SEDATION
     Dosage: 0.3 MCG/KG/MIN (0.15 - 0.35 MCG/KG/MIN), INTRAVENOUS, 0.25 -0.35 MCG/KG/M, INTRAVENOUS
     Route: 042
     Dates: start: 20111120, end: 20111128
  4. DEXAMEDETOMIDINE HYDROCHLORIDE [Suspect]
     Indication: SEDATION
     Dosage: 0.3 MCG/KG/MIN (0.15 - 0.35 MCG/KG/MIN), INTRAVENOUS, 0.25 -0.35 MCG/KG/M, INTRAVENOUS
     Route: 042
     Dates: start: 20111129, end: 20111130
  5. FENTANYL CITRATE [Concomitant]
  6. DOBUTAMINE HCL [Concomitant]
  7. PROPOFOL [Concomitant]

REACTIONS (4)
  - BRADYCARDIA [None]
  - BLOOD PRESSURE DECREASED [None]
  - CARDIAC ARREST [None]
  - MELAENA [None]
